FAERS Safety Report 14152519 (Version 1)
Quarter: 2017Q4

REPORT INFORMATION
  Report Type: Report from Study
  Country: BR (occurrence: BR)
  Receive Date: 20171102
  Receipt Date: 20171102
  Transmission Date: 20180321
  Serious: Yes (Hospitalization, Other)
  Sender: FDA-Public Use
  Company Number: PHHY2017BR160412

PATIENT
  Sex: Female
  Weight: 65 kg

DRUGS (1)
  1. ACLASTA [Suspect]
     Active Substance: ZOLEDRONIC ACID
     Indication: PRODUCT USED FOR UNKNOWN INDICATION
     Dosage: 1 DF (5 MG/ 100ML), Q12MO
     Route: 042

REACTIONS (5)
  - Femur fracture [Unknown]
  - Tooth loss [Unknown]
  - Vision blurred [Recovered/Resolved]
  - Post procedural complication [Unknown]
  - Dizziness [Recovering/Resolving]
